FAERS Safety Report 20058788 (Version 1)
Quarter: 2021Q4

REPORT INFORMATION
  Report Type: Spontaneous
  Country: US (occurrence: None)
  Receive Date: 20211111
  Receipt Date: 20211111
  Transmission Date: 20220304
  Serious: No
  Sender: FDA-Public Use
  Company Number: None

PATIENT
  Age: 54 Year
  Sex: Female
  Weight: 63.4 kg

DRUGS (10)
  1. MERCAPTOPURINE [Suspect]
     Active Substance: MERCAPTOPURINE
     Dates: end: 20210830
  2. METHOTREXATE [Suspect]
     Active Substance: METHOTREXATE
     Dates: end: 20210825
  3. CYCLOPHOSPHAMIDE [Suspect]
     Active Substance: CYCLOPHOSPHAMIDE
     Dates: end: 20200413
  4. CYTARABINE [Suspect]
     Active Substance: CYTARABINE
     Dates: end: 20200523
  5. DAUNORUBICIN [Suspect]
     Active Substance: DAUNORUBICIN
     Dates: end: 20200406
  6. DEXAMETHASONE [Suspect]
     Active Substance: DEXAMETHASONE
     Dates: end: 20200405
  7. ETOPOSIDE [Suspect]
     Active Substance: ETOPOSIDE
     Dates: end: 20200523
  8. ONCASPAR [Suspect]
     Active Substance: PEGASPARGASE
     Dates: end: 20200118
  9. PREDNISONE [Suspect]
     Active Substance: PREDNISONE
     Dates: end: 20210529
  10. VINCRISTINE SULFATE [Suspect]
     Active Substance: VINCRISTINE SULFATE
     Dates: end: 20210525

REACTIONS (3)
  - Alanine aminotransferase increased [None]
  - Aspartate aminotransferase increased [None]
  - Platelet count decreased [None]

NARRATIVE: CASE EVENT DATE: 20210824
